FAERS Safety Report 4737955-1 (Version None)
Quarter: 2005Q3

REPORT INFORMATION
  Report Type: 
  Country: None (occurrence: None)
  Receive Date: 20050803
  Receipt Date: 20050719
  Transmission Date: 20060218
  Serious: Yes (Other)
  Sender: FDA-Public Use
  Company Number: PHNU2005DE02610

PATIENT
  Age: 66 Year
  Sex: Female

DRUGS (1)
  1. VISUDYNE [Suspect]
     Dates: start: 20020424, end: 20020424

REACTIONS (1)
  - HEPATIC CIRRHOSIS [None]
